FAERS Safety Report 22122382 (Version 2)
Quarter: 2023Q2

REPORT INFORMATION
  Report Type: Spontaneous
  Country: US (occurrence: US)
  Receive Date: 20230321
  Receipt Date: 20230418
  Transmission Date: 20230722
  Serious: Yes (Other)
  Sender: FDA-Public Use
  Company Number: US-BAYER-2023A034877

PATIENT
  Age: 15 Year
  Sex: Male

DRUGS (3)
  1. VITRAKVI [Suspect]
     Active Substance: LAROTRECTINIB
     Indication: Spindle cell sarcoma
     Dosage: UNK
     Dates: start: 202108, end: 202208
  2. VITRAKVI [Suspect]
     Active Substance: LAROTRECTINIB
     Indication: Spindle cell sarcoma
     Dosage: UNK
     Dates: start: 202210, end: 202301
  3. VITRAKVI [Suspect]
     Active Substance: LAROTRECTINIB
     Indication: Spindle cell sarcoma
     Dosage: UNK
     Dates: start: 202303

REACTIONS (3)
  - Spindle cell sarcoma [Recovered/Resolved]
  - Spindle cell sarcoma [Not Recovered/Not Resolved]
  - Metastases to lymph nodes [Not Recovered/Not Resolved]

NARRATIVE: CASE EVENT DATE: 20220801
